FAERS Safety Report 4285803-9 (Version None)
Quarter: 2004Q1

REPORT INFORMATION
  Report Type: 
  Country: None (occurrence: None)
  Receive Date: 20040203
  Receipt Date: 20040120
  Transmission Date: 20041129
  Serious: Yes (Other)
  Sender: FDA-Public Use
  Company Number: 234933

PATIENT
  Age: 74 Year
  Sex: Male
  Weight: 86.2 kg

DRUGS (10)
  1. NOVOLOG [Suspect]
     Indication: INSULIN-REQUIRING TYPE II DIABETES MELLITUS
     Dosage: SUBCUTANEOUS
     Route: 058
     Dates: start: 20030801
  2. HUMULIN R [Concomitant]
  3. ALTACE [Concomitant]
  4. XANAX [Concomitant]
  5. ASPIRIN [Concomitant]
  6. SYNTHROID [Concomitant]
  7. VIOXX [Concomitant]
  8. FLOMAX ^BOEHRINGER INGELHEIM^ (TAMSULOSIN HYDROCHLORIDE) [Concomitant]
  9. ZETIA [Concomitant]
  10. BENADRYL [Concomitant]

REACTIONS (4)
  - CONDITION AGGRAVATED [None]
  - GLYCOSYLATED HAEMOGLOBIN DECREASED [None]
  - MACULAR DEGENERATION [None]
  - VISION BLURRED [None]
